FAERS Safety Report 19104617 (Version 4)
Quarter: 2021Q4

REPORT INFORMATION
  Report Type: Spontaneous
  Country: US (occurrence: US)
  Receive Date: 20210408
  Receipt Date: 20211005
  Transmission Date: 20220304
  Serious: No
  Sender: FDA-Public Use
  Company Number: US-LUPIN PHARMACEUTICALS INC.-2021-04196

PATIENT
  Sex: Female

DRUGS (1)
  1. ALBUTEROL SULFATE [Suspect]
     Active Substance: ALBUTEROL SULFATE
     Indication: Bronchospasm
     Dosage: UNK, PRN
     Route: 065
     Dates: start: 20210101

REACTIONS (3)
  - Limb injury [Unknown]
  - Device malfunction [Unknown]
  - Fall [Unknown]

NARRATIVE: CASE EVENT DATE: 20210101
